FAERS Safety Report 16629099 (Version 1)
Quarter: 2019Q3

REPORT INFORMATION
  Report Type: Spontaneous
  Country: US (occurrence: US)
  Receive Date: 20190725
  Receipt Date: 20190725
  Transmission Date: 20191004
  Serious: Yes (Other)
  Sender: FDA-Public Use
  Company Number: US-STRIDES ARCOLAB LIMITED-2019SP002273

PATIENT
  Sex: Male

DRUGS (5)
  1. FACTOR IX [Suspect]
     Active Substance: COAGULATION FACTOR IX HUMAN
     Indication: ANTI FACTOR IX ANTIBODY INCREASED
     Dosage: UNK
     Route: 065
  2. MYCOPHENOLATE MOFETIL. [Suspect]
     Active Substance: MYCOPHENOLATE MOFETIL
     Indication: IMMUNOMODULATORY THERAPY
  3. RITUXIMAB. [Suspect]
     Active Substance: RITUXIMAB
     Indication: IMMUNOMODULATORY THERAPY
  4. RITUXIMAB. [Suspect]
     Active Substance: RITUXIMAB
     Indication: ANTI FACTOR IX ANTIBODY INCREASED
     Dosage: 375 MG/M2, UNKNOWN
     Route: 065
  5. MYCOPHENOLATE MOFETIL. [Suspect]
     Active Substance: MYCOPHENOLATE MOFETIL
     Indication: ANTI FACTOR IX ANTIBODY INCREASED
     Dosage: UNK
     Route: 065

REACTIONS (2)
  - Off label use [None]
  - Factor IX inhibition [Unknown]
